FAERS Safety Report 10707859 (Version 1)
Quarter: 2015Q1

REPORT INFORMATION
  Report Type: Spontaneous
  Country: CN (occurrence: CN)
  Receive Date: 20150113
  Receipt Date: 20150113
  Transmission Date: 20150721
  Serious: Yes (Hospitalization, Other)
  Sender: FDA-Public Use
  Company Number: CN-PFIZER INC-2015012226

PATIENT
  Age: 65 Year
  Sex: Female
  Weight: 50 kg

DRUGS (1)
  1. SOLU-MEDROL [Suspect]
     Active Substance: METHYLPREDNISOLONE SODIUM SUCCINATE
     Indication: POSTPARTUM HYPOPITUITARISM
     Dosage: 40 MG, 1X/DAY
     Route: 041
     Dates: start: 20140825, end: 20140826

REACTIONS (3)
  - Aphasia [Recovered/Resolved]
  - Abnormal behaviour [Recovered/Resolved]
  - Mental disorder [Recovered/Resolved]

NARRATIVE: CASE EVENT DATE: 20140827
